FAERS Safety Report 12496019 (Version 1)
Quarter: 2016Q2

REPORT INFORMATION
  Report Type: Spontaneous
  Country: US (occurrence: US)
  Receive Date: 20160624
  Receipt Date: 20160624
  Transmission Date: 20160815
  Serious: Yes (Death)
  Sender: FDA-Public Use
  Company Number: US-ASTELLAS-2016US023860

PATIENT
  Age: 18 Year
  Sex: Female

DRUGS (2)
  1. PROGRAF [Suspect]
     Active Substance: TACROLIMUS\TACROLIMUS ANHYDROUS
     Indication: LIVER TRANSPLANT
     Dosage: 1.5 MG, ONCE DAILY ON MONDAY, WEDNESDAY, FRIDAY, SATURDAY
     Route: 048
     Dates: start: 20150608, end: 20150908
  2. PROGRAF [Suspect]
     Active Substance: TACROLIMUS\TACROLIMUS ANHYDROUS
     Dosage: 1 MG, ONCE DAILY ON TUESDAY, THURSDAY, SUNDAY
     Route: 048
     Dates: start: 20150608, end: 20150908

REACTIONS (1)
  - Death [Fatal]

NARRATIVE: CASE EVENT DATE: 20160211
